FAERS Safety Report 16953685 (Version 2)
Quarter: 2019Q4

REPORT INFORMATION
  Report Type: Spontaneous
  Country: US (occurrence: US)
  Receive Date: 20191023
  Receipt Date: 20191121
  Transmission Date: 20200122
  Serious: Yes (Other)
  Sender: FDA-Public Use
  Company Number: US-SA-2019SA291895

PATIENT
  Age: 18 Year
  Sex: Female

DRUGS (1)
  1. DUPIXENT [Suspect]
     Active Substance: DUPILUMAB
     Dosage: UNK
     Dates: start: 201812

REACTIONS (3)
  - Vision blurred [Unknown]
  - Tunnel vision [Unknown]
  - Optic nerve compression [Unknown]

NARRATIVE: CASE EVENT DATE: 2019
